FAERS Safety Report 20094386 (Version 1)
Quarter: 2021Q4

REPORT INFORMATION
  Report Type: Report from Study
  Country: US (occurrence: US)
  Receive Date: 20211122
  Receipt Date: 20211122
  Transmission Date: 20220303
  Serious: Yes (Other)
  Sender: FDA-Public Use
  Company Number: US-ABBVIE-21K-163-4168758-00

PATIENT

DRUGS (1)
  1. HUMIRA [Suspect]
     Active Substance: ADALIMUMAB
     Indication: Rheumatoid arthritis
     Route: 058

REACTIONS (6)
  - Seizure [Unknown]
  - Substance abuse [Unknown]
  - Loss of consciousness [Unknown]
  - Epidural haemorrhage [Unknown]
  - Psoriatic arthropathy [Unknown]
  - Bone disorder [Unknown]
